FAERS Safety Report 7514811-7 (Version None)
Quarter: 2011Q2

REPORT INFORMATION
  Report Type: 
  Country: None (occurrence: None)
  Receive Date: 20110422
  Receipt Date: 20101227
  Transmission Date: 20111010
  Serious: Yes (Disabling)
  Sender: FDA-Public Use
  Company Number: WAES 1012USA03805

PATIENT
  Age: 4 Year
  Sex: Male

DRUGS (2)
  1. SINGULAIR [Suspect]
     Indication: SEASONAL ALLERGY
     Dosage: 5 MG/DAILY. PO
     Route: 048
     Dates: start: 20080901
  2. FOCALIN [Concomitant]

REACTIONS (5)
  - AGGRESSION [None]
  - IRRITABILITY [None]
  - OVERDOSE [None]
  - TREMOR [None]
  - AGITATION [None]
